FAERS Safety Report 7320502-8 (Version None)
Quarter: 2011Q1

REPORT INFORMATION
  Report Type: 
  Country: None (occurrence: None)
  Receive Date: 20110228
  Receipt Date: 20110221
  Transmission Date: 20110831
  Serious: Yes (Death)
  Sender: FDA-Public Use
  Company Number: JP-BRISTOL-MYERS SQUIBB COMPANY-15542244

PATIENT
  Age: 61 Year
  Sex: Male
  Weight: 44 kg

DRUGS (11)
  1. PREDONINE [Suspect]
     Dosage: INITIAL DOSE:13MG/D,DOSE INCREASED TO 15MG/D ON 06JAN11 ONGOING
     Route: 048
  2. TACROLIMUS [Concomitant]
  3. ORENCIA [Suspect]
     Indication: RHEUMATOID ARTHRITIS
     Dosage: THERAPY DATES:06JAN11
     Route: 041
     Dates: start: 20101215
  4. METHOTREXATE [Suspect]
     Dosage: INITIAL DOSE:8MG/WK,DOSE INCREASED TO 16MG/WK ON 06JAN11 DISCONTINUED
     Route: 048
     Dates: start: 20101223, end: 20110106
  5. FAMOTIDINE [Concomitant]
  6. ADALIMUMAB [Concomitant]
  7. FOLIAMIN [Concomitant]
  8. FOSAMAC [Concomitant]
  9. FERROUS CITRATE [Concomitant]
     Dosage: FEROTYM
  10. ISCOTIN [Concomitant]
  11. DICLOFENAC SODIUM [Concomitant]
     Indication: RHEUMATOID ARTHRITIS
     Dosage: SORELMON SR

REACTIONS (1)
  - PNEUMOCYSTIS JIROVECI PNEUMONIA [None]
